FAERS Safety Report 7352736-0 (Version None)
Quarter: 2011Q1

REPORT INFORMATION
  Report Type: 
  Country: None (occurrence: None)
  Receive Date: 20110302
  Receipt Date: 20100719
  Transmission Date: 20110831
  Serious: Yes (Hospitalization)
  Sender: FDA-Public Use
  Company Number: 311631

PATIENT
  Age: 44 Year
  Sex: Male
  Weight: 62.6 kg

DRUGS (1)
  1. NOVOLIN 70/30 [Suspect]
     Indication: TYPE 1 DIABETES MELLITUS
     Dosage: 10, 10, 15, SUBCUTANEOUS
     Route: 058
     Dates: start: 20020101

REACTIONS (1)
  - BLOOD GLUCOSE INCREASED [None]
